FAERS Safety Report 10762228 (Version 2)
Quarter: 2015Q1

REPORT INFORMATION
  Report Type: Spontaneous
  Country: US (occurrence: US)
  Receive Date: 20150204
  Receipt Date: 20150218
  Transmission Date: 20150721
  Serious: Yes (Other)
  Sender: FDA-Public Use
  Company Number: US-RB-072667-15

PATIENT
  Age: 23 Year
  Sex: Male

DRUGS (1)
  1. MUCINEX DM [Suspect]
     Active Substance: DEXTROMETHORPHAN HYDROBROMIDE\GUAIFENESIN
     Indication: DRUG ABUSE
     Dosage: TOOK 10 TABLETS, ONE TIME DOSE
     Route: 048

REACTIONS (10)
  - Hypertension [Recovered/Resolved]
  - Drug abuse [Recovered/Resolved]
  - Blood creatinine increased [Recovered/Resolved]
  - Oedema [Recovered/Resolved]
  - Haematuria [Recovered/Resolved]
  - Ureteric obstruction [Recovered/Resolved]
  - Intentional overdose [Recovered/Resolved]
  - Dysuria [Recovered/Resolved]
  - Flank pain [Recovered/Resolved]
  - Hydronephrosis [Recovered/Resolved]
